FAERS Safety Report 23393205 (Version 1)
Quarter: 2024Q1

REPORT INFORMATION
  Report Type: Spontaneous
  Country: US (occurrence: US)
  Receive Date: 20240111
  Receipt Date: 20240111
  Transmission Date: 20240409
  Serious: No
  Sender: FDA-Public Use
  Company Number: US-BIOVITRUM-2024-US-000472

PATIENT
  Age: 72 Year
  Sex: Male

DRUGS (1)
  1. DOPTELET [Suspect]
     Active Substance: AVATROMBOPAG MALEATE
     Indication: Product used for unknown indication
     Dosage: ONCE DAILY
     Route: 048
     Dates: start: 20231231

REACTIONS (1)
  - Platelet count abnormal [Unknown]
